FAERS Safety Report 21913995 (Version 1)
Quarter: 2023Q1

REPORT INFORMATION
  Report Type: Spontaneous
  Country: US (occurrence: US)
  Receive Date: 20230126
  Receipt Date: 20230126
  Transmission Date: 20230418
  Serious: No
  Sender: FDA-Public Use
  Company Number: US-ALLERGAN-2224274US

PATIENT
  Age: 59 Year

DRUGS (4)
  1. BOTOX [Suspect]
     Active Substance: ONABOTULINUMTOXINA
     Indication: Skin wrinkling
     Dosage: 20 UNITS, SINGLE
     Route: 030
     Dates: start: 20220701, end: 20220701
  2. BOTOX [Suspect]
     Active Substance: ONABOTULINUMTOXINA
     Indication: Skin wrinkling
     Dosage: 8 UNITS, SINGLE
     Route: 030
     Dates: start: 20220701, end: 20220701
  3. BOTOX [Suspect]
     Active Substance: ONABOTULINUMTOXINA
     Indication: Skin wrinkling
     Dosage: 14 UNITS, SINGLE
     Route: 030
     Dates: start: 20220701, end: 20220701
  4. COVID-19 VACCINE [Concomitant]

REACTIONS (1)
  - Drug ineffective [Unknown]

NARRATIVE: CASE EVENT DATE: 20220701
